FAERS Safety Report 19350181 (Version 1)
Quarter: 2021Q2

REPORT INFORMATION
  Report Type: Spontaneous
  Country: US (occurrence: US)
  Receive Date: 20210601
  Receipt Date: 20210601
  Transmission Date: 20210717
  Serious: No
  Sender: FDA-Public Use
  Company Number: None

PATIENT
  Age: 60 Year
  Sex: Male

DRUGS (1)
  1. PERFLUTREN (PERFLUTREN LIPID MICROSPHERE INJ, 2ML) [Suspect]
     Active Substance: PERFLUTREN
     Indication: CARDIAC OPERATION
     Route: 042
     Dates: start: 20210323, end: 20210323

REACTIONS (2)
  - Throat tightness [None]
  - Dyspnoea [None]

NARRATIVE: CASE EVENT DATE: 20210323
